FAERS Safety Report 8785786 (Version 2)
Quarter: 2012Q4

REPORT INFORMATION
  Report Type: 
  Country: FR (occurrence: FR)
  Receive Date: 20120914
  Receipt Date: 20121001
  Transmission Date: 20130627
  Serious: Yes (Other)
  Sender: FDA-Public Use
  Company Number: FR-ABBOTT-12P-056-0977680-00

PATIENT
  Sex: Male
  Weight: 63 kg

DRUGS (3)
  1. HUMIRA [Suspect]
     Indication: CROHN^S DISEASE
     Dates: start: 20110208
  2. HUMIRA [Suspect]
     Indication: ANKYLOSING SPONDYLITIS
  3. HUMIRA [Suspect]
     Indication: CROHN^S DISEASE

REACTIONS (1)
  - Vascular purpura [Recovering/Resolving]
